FAERS Safety Report 7537330-0 (Version None)
Quarter: 2011Q2

REPORT INFORMATION
  Report Type: 
  Country: None (occurrence: None)
  Receive Date: 20110609
  Receipt Date: 20110606
  Transmission Date: 20111010
  Serious: No
  Sender: FDA-Public Use
  Company Number: US-PFIZER INC-2011122349

PATIENT
  Age: 34 Year
  Sex: Female

DRUGS (10)
  1. DAYPRO [Suspect]
     Dosage: UNK
     Dates: start: 20080101
  2. SKELAXIN [Suspect]
     Indication: INTERVERTEBRAL DISC DEGENERATION
     Dosage: UNK
     Dates: start: 20080101
  3. ULTRAM [Concomitant]
     Dosage: UNK
     Dates: start: 20080101
  4. DEMEROL [Concomitant]
  5. EXCEDRIN (MIGRAINE) [Concomitant]
     Indication: MIGRAINE
  6. NAPROXEN (ALEVE) [Concomitant]
     Indication: HEADACHE
  7. TRAMADOL [Concomitant]
     Dosage: UNK
  8. EXCEDRIN (MIGRAINE) [Concomitant]
     Indication: HEADACHE
  9. NAPROXEN (ALEVE) [Concomitant]
     Indication: MIGRAINE
  10. PERCOCET [Concomitant]

REACTIONS (4)
  - ALOPECIA [None]
  - ACNE [None]
  - FAT TISSUE INCREASED [None]
  - ABDOMINAL DISCOMFORT [None]
